FAERS Safety Report 13614555 (Version 1)
Quarter: 2017Q2

REPORT INFORMATION
  Report Type: Spontaneous
  Country: US (occurrence: US)
  Receive Date: 20170605
  Receipt Date: 20170605
  Transmission Date: 20170830
  Serious: Yes (Other)
  Sender: FDA-Public Use
  Company Number: None

PATIENT
  Age: 57 Year
  Sex: Female
  Weight: 95.4 kg

DRUGS (2)
  1. TOLTERODINE [Suspect]
     Active Substance: TOLTERODINE
  2. TROSPIUM [Suspect]
     Active Substance: TROSPIUM
     Indication: URGE INCONTINENCE
     Route: 048
     Dates: start: 20170201, end: 20170313

REACTIONS (1)
  - Urinary retention [None]

NARRATIVE: CASE EVENT DATE: 20170313
